FAERS Safety Report 19063818 (Version 4)
Quarter: 2021Q3

REPORT INFORMATION
  Report Type: Report from Study
  Country: IN (occurrence: IN)
  Receive Date: 20210326
  Receipt Date: 20210909
  Transmission Date: 20211014
  Serious: Yes (Death, Hospitalization)
  Sender: FDA-Public Use
  Company Number: NVSC2021IN055941

PATIENT
  Age: 73 Year
  Sex: Male

DRUGS (5)
  1. RAFINLAR [Suspect]
     Active Substance: DABRAFENIB
     Dosage: 100 MG, BID
     Route: 065
     Dates: start: 20201202, end: 20210824
  2. MEQSEL [Suspect]
     Active Substance: TRAMETINIB
     Dosage: 0.5 MG, QD
     Route: 065
     Dates: end: 20210824
  3. MEQSEL [Suspect]
     Active Substance: TRAMETINIB
     Indication: NON-SMALL CELL LUNG CANCER
     Dosage: 2 MG, QD
     Route: 065
     Dates: start: 20201013, end: 20201201
  4. RAFINLAR [Suspect]
     Active Substance: DABRAFENIB
     Indication: NON-SMALL CELL LUNG CANCER
     Dosage: 75 MG, BID
     Route: 065
     Dates: start: 20201013, end: 20201201
  5. MEQSEL [Suspect]
     Active Substance: TRAMETINIB
     Dosage: 1 MG, QD
     Route: 065
     Dates: start: 20201202

REACTIONS (10)
  - Dyspnoea [Fatal]
  - Incorrect dose administered [Recovering/Resolving]
  - Pleural effusion [Recovered/Resolved]
  - Chills [Recovered/Resolved]
  - Fatigue [Unknown]
  - Decreased appetite [Recovering/Resolving]
  - Mobility decreased [Unknown]
  - Dyspnoea [Recovered/Resolved]
  - Pyrexia [Unknown]
  - Off label use [Unknown]

NARRATIVE: CASE EVENT DATE: 20210225
